FAERS Safety Report 24782282 (Version 1)
Quarter: 2024Q4

REPORT INFORMATION
  Report Type: Spontaneous
  Country: US (occurrence: US)
  Receive Date: 20241227
  Receipt Date: 20241227
  Transmission Date: 20250114
  Serious: No
  Sender: BLUEPRINT MEDICINES
  Company Number: US-Blueprint Medicines Corporation-SP-US-2024-002545

PATIENT
  Age: 56 Year
  Sex: Male

DRUGS (1)
  1. AYVAKIT [Suspect]
     Active Substance: AVAPRITINIB
     Indication: Smouldering systemic mastocytosis
     Route: 065
     Dates: start: 20240918

REACTIONS (4)
  - Amnesia [Unknown]
  - Headache [Unknown]
  - Crepitations [Unknown]
  - Off label use [Unknown]
